FAERS Safety Report 24400426 (Version 1)
Quarter: 2024Q4

REPORT INFORMATION
  Report Type: Other
  Country: JP (occurrence: JP)
  Receive Date: 20241005
  Receipt Date: 20241005
  Transmission Date: 20250114
  Serious: Yes (Disabling, Other)
  Sender: DEXCEL
  Company Number: JP-DEXPHARM-2024-3256

PATIENT
  Age: 76 Year
  Sex: Female

DRUGS (1)
  1. DONEPEZIL [Suspect]
     Active Substance: DONEPEZIL
     Indication: Parkinsonism

REACTIONS (1)
  - Dropped head syndrome [Recovered/Resolved]
